FAERS Safety Report 18006156 (Version 1)
Quarter: 2020Q3

REPORT INFORMATION
  Report Type: Spontaneous
  Country: IT (occurrence: IT)
  Receive Date: 20200709
  Receipt Date: 20200709
  Transmission Date: 20201103
  Serious: Yes (Other)
  Sender: FDA-Public Use
  Company Number: NVSC2020IT150634

PATIENT
  Age: 73 Year
  Sex: Male
  Weight: 76 kg

DRUGS (1)
  1. OXALIPLATIN. [Suspect]
     Active Substance: OXALIPLATIN
     Indication: PANCREATIC CARCINOMA STAGE IV
     Dosage: 163 MG
     Route: 041
     Dates: start: 20200128

REACTIONS (1)
  - Band sensation [Recovered/Resolved]

NARRATIVE: CASE EVENT DATE: 20200211
